FAERS Safety Report 19841232 (Version 3)
Quarter: 2021Q4

REPORT INFORMATION
  Report Type: Report from Study
  Country: US (occurrence: US)
  Receive Date: 20210915
  Receipt Date: 20211117
  Transmission Date: 20220303
  Serious: No
  Sender: FDA-Public Use
  Company Number: US-ALLERGAN-2131852US

PATIENT
  Age: 17 Year
  Sex: Male
  Weight: 74.376 kg

DRUGS (9)
  1. CARIPRAZINE HYDROCHLORIDE [Suspect]
     Active Substance: CARIPRAZINE HYDROCHLORIDE
     Indication: Bipolar I disorder
     Dosage: 3 MG, QD
     Route: 048
     Dates: start: 20210826
  2. CARIPRAZINE HYDROCHLORIDE [Suspect]
     Active Substance: CARIPRAZINE HYDROCHLORIDE
     Dosage: 4.5 MG, QD
     Route: 048
     Dates: start: 20210329, end: 20210825
  3. CARIPRAZINE HYDROCHLORIDE [Suspect]
     Active Substance: CARIPRAZINE HYDROCHLORIDE
     Dosage: 3 MG, QD
     Route: 048
     Dates: start: 20210322, end: 20210328
  4. CARIPRAZINE HYDROCHLORIDE [Suspect]
     Active Substance: CARIPRAZINE HYDROCHLORIDE
     Dosage: 0.5 MG, QD
     Route: 048
     Dates: start: 20210312, end: 20210321
  5. LORAZEPAM [Concomitant]
     Active Substance: LORAZEPAM
     Indication: Anxiety
     Dosage: 1 MG, PRN(BID)
     Route: 048
     Dates: start: 20210813
  6. PROPARACAINE [PROXYMETACAINE] [Concomitant]
     Indication: Anaesthetic ophthalmic procedure
     Dosage: 1 GTT, SINGLE
     Route: 061
     Dates: start: 20210826, end: 20210826
  7. PROPARACAINE [PROXYMETACAINE] [Concomitant]
     Dosage: 1 GTT, SINGLE
     Route: 061
     Dates: start: 20210308, end: 20210308
  8. TROPICAMIDE [Concomitant]
     Active Substance: TROPICAMIDE
     Indication: Pupil dilation procedure
     Dosage: 1 GTT, SINGLE
     Route: 061
     Dates: start: 20210826, end: 20210826
  9. TROPICAMIDE [Concomitant]
     Active Substance: TROPICAMIDE
     Dosage: 1 GTT, SINGLE
     Route: 061
     Dates: start: 20210308, end: 20210308

REACTIONS (1)
  - Cataract nuclear [Recovered/Resolved]

NARRATIVE: CASE EVENT DATE: 20210826
